FAERS Safety Report 14470726 (Version 2)
Quarter: 2018Q1

REPORT INFORMATION
  Report Type: Report from Study
  Country: US (occurrence: US)
  Receive Date: 20180131
  Receipt Date: 20180322
  Transmission Date: 20180509
  Serious: Yes (Death, Hospitalization)
  Sender: FDA-Public Use
  Company Number: US-ACTELION-A-US2018-166707

PATIENT
  Age: 71 Year
  Sex: Female
  Weight: 66.21 kg

DRUGS (5)
  1. OPSUMIT [Suspect]
     Active Substance: MACITENTAN
     Indication: PULMONARY HYPERTENSION
     Dosage: 10 MG, QD
     Route: 048
     Dates: start: 20140604
  2. TYVASO [Concomitant]
     Active Substance: TREPROSTINIL
  3. AMLODIPINE [Concomitant]
     Active Substance: AMLODIPINE BESYLATE
  4. COUMADIN [Concomitant]
     Active Substance: WARFARIN SODIUM
  5. SILDENAFIL CITRATE. [Concomitant]
     Active Substance: SILDENAFIL CITRATE

REACTIONS (5)
  - Hypertension [Unknown]
  - Death [Fatal]
  - Pneumonia [Unknown]
  - Pleural effusion [Unknown]
  - Vital functions abnormal [Unknown]
